FAERS Safety Report 17394023 (Version 2)
Quarter: 2020Q1

REPORT INFORMATION
  Report Type: Spontaneous
  Country: US (occurrence: US)
  Receive Date: 20200210
  Receipt Date: 20200304
  Transmission Date: 20200409
  Serious: No
  Sender: FDA-Public Use
  Company Number: US-GLAXOSMITHKLINE-US2020018409

PATIENT
  Age: 63 Year
  Sex: Male

DRUGS (4)
  1. FLONASE [Suspect]
     Active Substance: FLUTICASONE PROPIONATE
     Indication: TINNITUS
     Dosage: 50 UNK
     Route: 065
     Dates: start: 201901, end: 20200221
  2. MUCINEX [Concomitant]
     Active Substance: GUAIFENESIN
     Indication: PRODUCT USED FOR UNKNOWN INDICATION
     Dosage: UNK
     Route: 065
  3. FLONASE [Suspect]
     Active Substance: FLUTICASONE PROPIONATE
     Indication: EAR CONGESTION
  4. FLONASE [Suspect]
     Active Substance: FLUTICASONE PROPIONATE
     Indication: EAR DISCOMFORT

REACTIONS (6)
  - Off label use [Unknown]
  - Drug ineffective for unapproved indication [Unknown]
  - Headache [Recovered/Resolved]
  - Product use in unapproved indication [Unknown]
  - Eustachian tube dysfunction [Unknown]
  - Sinusitis [Unknown]

NARRATIVE: CASE EVENT DATE: 20200102
